FAERS Safety Report 8374296-8 (Version None)
Quarter: 2012Q2

REPORT INFORMATION
  Report Type: 
  Country: None (occurrence: None)
  Receive Date: 20120521
  Receipt Date: 20120515
  Transmission Date: 20120825
  Serious: Yes (Hospitalization, Other)
  Sender: FDA-Public Use
  Company Number: PHHY2011CA91760

PATIENT
  Sex: Female

DRUGS (7)
  1. PERINDOPRIL ERBUMINE [Suspect]
     Indication: HYPERTENSION
     Dosage: UNK UKN, UNK
     Dates: end: 20120401
  2. DETROL [Concomitant]
     Dosage: UNK UKN, UNK
  3. CELEXA [Concomitant]
     Dosage: 30 MG, UNK
  4. VITAMIN D [Concomitant]
     Dosage: UNK UKN, UNK
  5. GILENYA [Suspect]
     Indication: RELAPSING-REMITTING MULTIPLE SCLEROSIS
     Dosage: 0.5 MG, QD
     Route: 048
     Dates: start: 20111014
  6. CALCIUM [Concomitant]
     Dosage: UNK UKN, UNK
  7. VITAMIN B-12 [Concomitant]
     Dosage: UNK UKN, UNK

REACTIONS (11)
  - SWELLING FACE [None]
  - HYPERTENSION [None]
  - FEELING DRUNK [None]
  - HEADACHE [None]
  - HYPERSENSITIVITY [None]
  - DIZZINESS [None]
  - LIP SWELLING [None]
  - CHEST PAIN [None]
  - PYREXIA [None]
  - MIGRAINE [None]
  - SCIATICA [None]
